FAERS Safety Report 21345359 (Version 7)
Quarter: 2023Q2

REPORT INFORMATION
  Report Type: Report from Study
  Country: GB (occurrence: GB)
  Receive Date: 20220916
  Receipt Date: 20230522
  Transmission Date: 20230722
  Serious: Yes (Hospitalization)
  Sender: FDA-Public Use
  Company Number: GB-GSK-GB2022132586

PATIENT

DRUGS (27)
  1. BELANTAMAB MAFODOTIN [Suspect]
     Active Substance: BELANTAMAB MAFODOTIN
     Indication: Plasma cell myeloma
     Dosage: 305 MG, CYC (2.50 MG/KG)
     Route: 042
     Dates: start: 20210528, end: 20211105
  2. BELANTAMAB MAFODOTIN [Suspect]
     Active Substance: BELANTAMAB MAFODOTIN
     Dosage: 295 MG, CYC (2.50 MG/KG)
     Route: 042
     Dates: start: 20211126, end: 20211126
  3. BELANTAMAB MAFODOTIN [Suspect]
     Active Substance: BELANTAMAB MAFODOTIN
     Dosage: 305 MG, CYC (2.50 MG/KG)
     Route: 042
     Dates: start: 20211217, end: 20220107
  4. BELANTAMAB MAFODOTIN [Suspect]
     Active Substance: BELANTAMAB MAFODOTIN
     Dosage: 295 MG, CYC (2.50 MG/KG)
     Route: 042
     Dates: start: 20220128, end: 20220218
  5. BELANTAMAB MAFODOTIN [Suspect]
     Active Substance: BELANTAMAB MAFODOTIN
     Dosage: 280 MG, CYC (2.50 MG/KG)
     Route: 042
     Dates: start: 20220311
  6. BORTEZOMIB [Suspect]
     Active Substance: BORTEZOMIB
     Indication: Plasma cell myeloma
     Dosage: 3 MG, CYC (1.30 MG/M2)
     Route: 058
     Dates: start: 20210528, end: 20210625
  7. BORTEZOMIB [Suspect]
     Active Substance: BORTEZOMIB
     Dosage: 2.25 MG, CYC (1.30 / 1  MG/M2)
     Route: 058
     Dates: start: 20210723, end: 20210816
  8. BORTEZOMIB [Suspect]
     Active Substance: BORTEZOMIB
     Dosage: 1.75MG, CYC (0.70 MG/M2)
     Route: 058
     Dates: start: 20210820
  9. DEXAMETHASONE [Suspect]
     Active Substance: DEXAMETHASONE
     Indication: Plasma cell myeloma
     Dosage: 20 MG, CYC
     Route: 048
     Dates: start: 20210528
  10. ZOPICLONE [Concomitant]
     Active Substance: ZOPICLONE
     Indication: Insomnia
     Dosage: 3.75 MG, QD
     Route: 048
     Dates: start: 20220913
  11. ALBUTEROL [Concomitant]
     Active Substance: ALBUTEROL
     Indication: Wheezing
     Dosage: 2 PUFF(S), Z (Q4H)
     Route: 055
     Dates: start: 20220709
  12. PREGABALIN [Concomitant]
     Active Substance: PREGABALIN
     Indication: Neuropathy peripheral
     Dosage: 50 MG, BID
     Route: 048
     Dates: start: 20220318
  13. ACETAMINOPHEN [Concomitant]
     Active Substance: ACETAMINOPHEN
     Indication: Pain
     Dosage: 1 G, QID
     Route: 048
     Dates: start: 20220917
  14. LOPERAMIDE [Concomitant]
     Active Substance: LOPERAMIDE
     Indication: Diarrhoea
     Dosage: 2 MG, PRN
     Route: 048
     Dates: start: 20221112
  15. LEVOTHYROXINE [Concomitant]
     Active Substance: LEVOTHYROXINE
     Indication: Hypothyroidism
     Dosage: 175 UG, QD
     Route: 048
     Dates: start: 202204, end: 20221220
  16. LEVOTHYROXINE [Concomitant]
     Active Substance: LEVOTHYROXINE
     Dosage: 150 UG, QD
     Route: 048
     Dates: start: 20221223
  17. LAMIVUDINE [Concomitant]
     Active Substance: LAMIVUDINE
     Indication: Antiviral prophylaxis
     Dosage: 100 MG, QD
     Route: 048
     Dates: start: 20160711
  18. FOLIC ACID [Concomitant]
     Active Substance: FOLIC ACID
     Indication: Folate deficiency
     Dosage: 5 MG, QD
     Route: 048
     Dates: start: 2021
  19. FAMOTIDINE [Concomitant]
     Active Substance: FAMOTIDINE
     Indication: Gastrooesophageal reflux disease
     Dosage: 20 MG, QD
     Route: 048
     Dates: start: 20220914
  20. ENOXAPARIN [Concomitant]
     Active Substance: ENOXAPARIN
     Indication: Embolism venous
     Dosage: 80 MG, BID
     Route: 058
     Dates: start: 20221111
  21. DOMPERIDONE [Concomitant]
     Active Substance: DOMPERIDONE
     Indication: Nausea
     Dosage: 10 MG, TID
     Route: 048
     Dates: start: 20220312
  22. CYCLIZINE [Concomitant]
     Active Substance: CYCLIZINE
     Indication: Dizziness
     Dosage: 50 MG, BID
     Route: 048
     Dates: start: 20221020
  23. CYANOCOBALAMIN [Concomitant]
     Active Substance: CYANOCOBALAMIN
     Indication: Vitamin D deficiency
     Dosage: 150 UG, QD
     Route: 048
     Dates: start: 20221222
  24. COLESEVELAM [Concomitant]
     Active Substance: COLESEVELAM
     Indication: Product used for unknown indication
     Dosage: 1.25 G, BID
     Route: 048
     Dates: start: 20221031
  25. CETRABEN OINTMENT [Concomitant]
     Indication: Product used for unknown indication
     Dosage: 1 APPLICATIONS, BID
     Route: 061
     Dates: start: 20220915
  26. ALBUMIN HUMAN [Concomitant]
     Active Substance: ALBUMIN HUMAN
     Indication: Electrolyte substitution therapy
     Dosage: 100 ML, PRN
     Route: 042
     Dates: start: 20221129
  27. CALCIUM CARBONATE\CHOLECALCIFEROL [Concomitant]
     Active Substance: CALCIUM CARBONATE\CHOLECALCIFEROL
     Indication: Vitamin D deficiency
     Dosage: 2 DF, BID
     Route: 048
     Dates: start: 20221130

REACTIONS (3)
  - Hepatic function abnormal [Not Recovered/Not Resolved]
  - Oedema peripheral [Not Recovered/Not Resolved]
  - Renal injury [Not Recovered/Not Resolved]

NARRATIVE: CASE EVENT DATE: 20220912
